FAERS Safety Report 13524977 (Version 1)
Quarter: 2017Q2

REPORT INFORMATION
  Report Type: Spontaneous
  Country: US (occurrence: US)
  Receive Date: 20170508
  Receipt Date: 20170508
  Transmission Date: 20170830
  Serious: No
  Sender: FDA-Public Use
  Company Number: US-ROCHE-1102862

PATIENT
  Sex: Male

DRUGS (6)
  1. TAXOL [Concomitant]
     Active Substance: PACLITAXEL
     Dosage: SECOND THERAPY
     Route: 065
  2. AVASTIN [Suspect]
     Active Substance: BEVACIZUMAB
     Indication: LUNG NEOPLASM MALIGNANT
     Route: 065
  3. AVASTIN [Suspect]
     Active Substance: BEVACIZUMAB
     Indication: MALIGNANT RESPIRATORY TRACT NEOPLASM
  4. TAXOL [Concomitant]
     Active Substance: PACLITAXEL
     Dosage: LAST DOSE: 14/JUL (UNSPECIFIED YEAR)
     Route: 065
  5. CARBOPLATIN. [Concomitant]
     Active Substance: CARBOPLATIN
     Dosage: LAST DOSE: 14/JUL (UNSPECIFIED YEAR)
     Route: 065
  6. CARBOPLATIN. [Concomitant]
     Active Substance: CARBOPLATIN
     Dosage: SECOND THERAPY
     Route: 065

REACTIONS (1)
  - Malaise [Unknown]
